FAERS Safety Report 7978552-4 (Version None)
Quarter: 2011Q4

REPORT INFORMATION
  Report Type: 
  Country: None (occurrence: None)
  Receive Date: 20111129
  Receipt Date: 20110915
  Transmission Date: 20120403
  Serious: No
  Sender: FDA-Public Use
  Company Number: PHEH2011US04432

PATIENT
  Age: 84 Year
  Sex: Male

DRUGS (1)
  1. AFINITOR [Suspect]
     Indication: PRIMITIVE NEUROECTODERMAL TUMOUR
     Dosage: 10 MG, QD
     Dates: start: 20110826

REACTIONS (5)
  - SWELLING [None]
  - SCAB [None]
  - ERYTHEMA [None]
  - RASH [None]
  - PRURITUS [None]
